FAERS Safety Report 7690981-5 (Version None)
Quarter: 2011Q3

REPORT INFORMATION
  Report Type: 
  Country: None (occurrence: None)
  Receive Date: 20110818
  Receipt Date: 20110810
  Transmission Date: 20111222
  Serious: Yes (Hospitalization)
  Sender: FDA-Public Use
  Company Number: US-SANOFI-AVENTIS-2011SA042743

PATIENT
  Age: 67 Year
  Sex: Male
  Weight: 85 kg

DRUGS (19)
  1. CABAZITAXEL [Suspect]
     Indication: PROSTATE CANCER
     Route: 042
     Dates: start: 20110504, end: 20110504
  2. PANTOPRAZOLE SODIUM [Concomitant]
     Route: 048
  3. POTASSIUM CHLORIDE [Concomitant]
  4. PROMETHAZINE [Concomitant]
     Route: 048
     Dates: start: 20110504
  5. BACTRIM [Concomitant]
     Dates: start: 20110531
  6. HUMULIN R [Concomitant]
     Route: 058
  7. ZOMETA [Concomitant]
     Route: 042
     Dates: start: 20081201
  8. NEULASTA [Concomitant]
     Route: 058
     Dates: start: 20110510
  9. MOMETASONE FUROATE [Concomitant]
  10. NPH INSULIN [Concomitant]
     Route: 058
  11. HYDROCHLOROTHIAZIDE [Concomitant]
     Route: 048
  12. PREDNISONE [Suspect]
     Indication: PROSTATE CANCER
     Dates: start: 20110504, end: 20110702
  13. CLONIDINE HYDROCHLORIDE [Concomitant]
     Route: 048
  14. DABIGATRAN ETEXILATE [Concomitant]
     Route: 048
     Dates: start: 20110602
  15. LANOXIN [Concomitant]
     Dates: start: 20110602
  16. CABAZITAXEL [Suspect]
     Route: 042
     Dates: start: 20110614, end: 20110614
  17. ONDANSETRON [Concomitant]
     Route: 048
     Dates: start: 20110504
  18. DILTIAZEM HYDROCHLORIDE [Concomitant]
  19. AMITRIPTYLINE HCL [Concomitant]
     Route: 048

REACTIONS (1)
  - HYPERGLYCAEMIA [None]
